FAERS Safety Report 5835338-4 (Version None)
Quarter: 2008Q3

REPORT INFORMATION
  Report Type: 
  Country: None (occurrence: None)
  Receive Date: 20080804
  Receipt Date: 20080730
  Transmission Date: 20090109
  Serious: Yes (Other)
  Sender: FDA-Public Use
  Company Number: 1000000145

PATIENT
  Age: 67 Year
  Sex: Male
  Weight: 99.7913 kg

DRUGS (6)
  1. LEVOTHROID [Suspect]
     Indication: AUTOIMMUNE THYROIDITIS
     Dosage: 100 MCG (100 MCG, 1 IN 1 D), ORAL
     Route: 048
     Dates: start: 19860101
  2. LEVOTHROID [Suspect]
     Indication: GOITRE
     Dosage: 100 MCG (100 MCG, 1 IN 1 D), ORAL
     Route: 048
     Dates: start: 19860101
  3. LIPITOR [Concomitant]
  4. ACIPHEX [Concomitant]
  5. PROTONIX [Concomitant]
  6. VITAMINS (NOS) [Concomitant]

REACTIONS (9)
  - ANXIETY [None]
  - ATRIAL FIBRILLATION [None]
  - BLOOD PRESSURE INCREASED [None]
  - CARDIAC FAILURE [None]
  - DILATATION VENTRICULAR [None]
  - FATIGUE [None]
  - MUSCULAR WEAKNESS [None]
  - NAUSEA [None]
  - WEIGHT INCREASED [None]
